FAERS Safety Report 14520009 (Version 1)
Quarter: 2018Q1

REPORT INFORMATION
  Report Type: Spontaneous
  Country: IT (occurrence: IT)
  Receive Date: 20180212
  Receipt Date: 20180212
  Transmission Date: 20180509
  Serious: Yes (Hospitalization)
  Sender: FDA-Public Use
  Company Number: IT-ASTRAZENECA-2018SE15548

PATIENT
  Age: 58 Year
  Sex: Male

DRUGS (1)
  1. QUETIAPINE. [Suspect]
     Active Substance: QUETIAPINE
     Dosage: 600.0MG ONCE/SINGLE ADMINISTRATION
     Route: 048
     Dates: start: 20160301, end: 20160301

REACTIONS (3)
  - Troponin I increased [Unknown]
  - Drug abuse [Unknown]
  - Electrocardiogram repolarisation abnormality [Unknown]

NARRATIVE: CASE EVENT DATE: 20160301
